FAERS Safety Report 7544596-X (Version None)
Quarter: 2011Q2

REPORT INFORMATION
  Report Type: 
  Country: None (occurrence: None)
  Receive Date: 20110614
  Receipt Date: 20110603
  Transmission Date: 20111010
  Serious: Yes (Other)
  Sender: FDA-Public Use
  Company Number: IE-BIOGENIDEC-2011BI000931

PATIENT
  Age: 68 Year
  Sex: Female

DRUGS (6)
  1. TYSABRI [Suspect]
     Indication: PROGRESSIVE MULTIPLE SCLEROSIS
     Route: 042
     Dates: start: 20070704, end: 20100505
  2. LYRICA [Concomitant]
  3. CITALOPRAM HYDROBROMIDE [Concomitant]
  4. ZANAFLEX [Concomitant]
  5. LIORESAI [Concomitant]
  6. CALCIUM CARBONATE [Concomitant]

REACTIONS (4)
  - ORAL CAVITY CANCER METASTATIC [None]
  - LICHEN PLANUS [None]
  - HIP FRACTURE [None]
  - CLAVICLE FRACTURE [None]
